FAERS Safety Report 9555822 (Version 1)
Quarter: 2013Q3

REPORT INFORMATION
  Report Type: Spontaneous
  Country: US (occurrence: None)
  Receive Date: 20130925
  Receipt Date: 20130925
  Transmission Date: 20140515
  Serious: No
  Sender: FDA-Public Use
  Company Number: None

PATIENT
  Age: 43 Year
  Sex: Female
  Weight: 56.7 kg

DRUGS (1)
  1. LIDOCAINE [Suspect]
     Indication: BACK PAIN
     Dosage: 1 PATCH APPLIED AS MEDICATED PATCH TO SKIN
     Route: 061

REACTIONS (3)
  - Device leakage [None]
  - Product substitution issue [None]
  - Product quality issue [None]
